FAERS Safety Report 24414568 (Version 1)
Quarter: 2024Q4

REPORT INFORMATION
  Report Type: Spontaneous
  Country: CN (occurrence: CN)
  Receive Date: 20241009
  Receipt Date: 20241009
  Transmission Date: 20250114
  Serious: No
  Sender: ALKEM
  Company Number: CN-ALKEM LABORATORIES LIMITED-CN-ALKEM-2024-21740

PATIENT
  Age: 4 Year
  Sex: Male

DRUGS (3)
  1. IBUPROFEN [Suspect]
     Active Substance: IBUPROFEN
     Indication: Pyrexia
     Dosage: UNK
     Route: 065
  2. CEFTRIAXONE [Suspect]
     Active Substance: CEFTRIAXONE
     Indication: Brucellosis
     Dosage: 2000 MILLIGRAM, QD, (DRIP)
     Route: 042
  3. RIFAMPIN [Suspect]
     Active Substance: RIFAMPIN
     Indication: Brucellosis
     Dosage: 15 MILLIGRAM/KILOGRAM, QD
     Route: 048

REACTIONS (2)
  - Prescription drug used without a prescription [Unknown]
  - Therapy non-responder [Unknown]
